FAERS Safety Report 13507991 (Version 1)
Quarter: 2017Q2

REPORT INFORMATION
  Report Type: Spontaneous
  Country: CN (occurrence: CN)
  Receive Date: 20170503
  Receipt Date: 20170503
  Transmission Date: 20170830
  Serious: Yes (Other)
  Sender: FDA-Public Use
  Company Number: CN-STRIDES ARCOLAB LIMITED-2017SP007114

PATIENT

DRUGS (2)
  1. TACROLIMUS. [Suspect]
     Active Substance: TACROLIMUS
     Dosage: 1.5 MG PER DAY
     Route: 065
  2. TACROLIMUS. [Suspect]
     Active Substance: TACROLIMUS
     Indication: GLOMERULONEPHRITIS MINIMAL LESION
     Dosage: 2.5 MG PER DAY
     Route: 065

REACTIONS (5)
  - Pseudomembranous colitis [Recovered/Resolved]
  - Disease recurrence [Unknown]
  - Off label use [Unknown]
  - Diarrhoea [Recovered/Resolved]
  - Drug use disorder [Unknown]
